FAERS Safety Report 21926635 (Version 1)
Quarter: 2023Q1

REPORT INFORMATION
  Report Type: Spontaneous
  Country: US (occurrence: None)
  Receive Date: 20230127
  Receipt Date: 20230127
  Transmission Date: 20230418
  Serious: No
  Sender: FDA-Public Use
  Company Number: None

PATIENT
  Age: 67 Year
  Sex: Female

DRUGS (1)
  1. ENBREL [Suspect]
     Active Substance: ETANERCEPT
     Dosage: 50MG DAILY SUBCUTANEOUS
     Route: 058

REACTIONS (4)
  - Throat irritation [None]
  - Dyspnoea [None]
  - Rash [None]
  - Rash [None]

NARRATIVE: CASE EVENT DATE: 20230126
